FAERS Safety Report 23942700 (Version 2)
Quarter: 2024Q2

REPORT INFORMATION
  Report Type: Spontaneous
  Country: US (occurrence: US)
  Receive Date: 20240605
  Receipt Date: 20240617
  Transmission Date: 20240717
  Serious: Yes (Hospitalization)
  Sender: FDA-Public Use
  Company Number: US-TEVA-VS-3204696

PATIENT
  Age: 32 Year

DRUGS (1)
  1. METHYLPREDNISOLONE [Suspect]
     Active Substance: METHYLPREDNISOLONE
     Indication: Tubulointerstitial nephritis
     Route: 065

REACTIONS (3)
  - Pyelonephritis [Recovering/Resolving]
  - Renal papillary necrosis [Recovering/Resolving]
  - Urinary tract obstruction [Recovered/Resolved]
